FAERS Safety Report 6779706-5 (Version None)
Quarter: 2010Q2

REPORT INFORMATION
  Report Type: 
  Country: None (occurrence: None)
  Receive Date: 20100618
  Receipt Date: 20100608
  Transmission Date: 20101027
  Serious: Yes (Hospitalization, Disabling, Other)
  Sender: FDA-Public Use
  Company Number: PHHY2010BR37010

PATIENT
  Sex: Male
  Weight: 98 kg

DRUGS (15)
  1. DIOVAN [Suspect]
     Indication: HYPERTENSION
  2. GABAPENTIN [Concomitant]
     Indication: DIABETES MELLITUS
     Dosage: 400MG, BID
     Route: 048
  3. COENZYME Q10 [Concomitant]
     Indication: HYPERTENSION
     Dosage: ONE TABLET DAILY
     Route: 048
  4. FOLIC ACID [Concomitant]
     Dosage: ONE TABLET (5 MG) DAILY
     Route: 048
  5. ATLANSIL [Concomitant]
     Indication: HYPERTENSION
     Dosage: ONE TABLET (200 MG) DAILY
     Route: 048
  6. RIVOTRIL [Concomitant]
     Indication: INSOMNIA
     Dosage: ONE TABLET (0.5 MG) DAILY
     Route: 048
  7. AMARYL [Concomitant]
     Indication: DIABETES MELLITUS
     Dosage: ONE TABLET (2 MG) DAILY
     Route: 048
  8. ACETYLSALICYLIC ACID [Concomitant]
     Dosage: ONE TABLET DAILY
  9. AZITHROMYCIN [Concomitant]
     Dosage: 500 MG, Q12H
  10. IBUPROFEN [Concomitant]
     Dosage: ONE TABLET EVERY 08 HOURS
  11. HISTAMINE SYRUP [Concomitant]
  12. BETAHISTINE HYDROCHLORIDE [Concomitant]
     Dosage: ONE TABLET EVERY 08 HOURS
  13. LEVOCETIRIZINE DIHYDROCHLORIDE [Concomitant]
     Dosage: 5 MG, Q8H
  14. HIXIZINE [Concomitant]
     Dosage: ONE TABLET (25 MG) ONE TIME DAILY
  15. CALAMINE [Concomitant]
     Dosage: ONE TUBE DAILY

REACTIONS (13)
  - BLOOD PRESSURE INCREASED [None]
  - DYSKINESIA [None]
  - ERYTHEMA [None]
  - FATIGUE [None]
  - HYPERSENSITIVITY [None]
  - INCORRECT DOSE ADMINISTERED [None]
  - OEDEMA PERIPHERAL [None]
  - PHARYNGEAL OEDEMA [None]
  - PRURITUS [None]
  - PYREXIA [None]
  - SKIN EXFOLIATION [None]
  - SOMNOLENCE [None]
  - WOUND HAEMORRHAGE [None]
